FAERS Safety Report 6592382-X (Version None)
Quarter: 2010Q1

REPORT INFORMATION
  Report Type: 
  Country: None (occurrence: None)
  Receive Date: 20100221
  Receipt Date: 20091006
  Transmission Date: 20100710
  Serious: No
  Sender: FDA-Public Use
  Company Number: US-ALLERGAN-0913872US

PATIENT
  Sex: Female

DRUGS (4)
  1. BOTOX [Suspect]
     Indication: TORTICOLLIS
     Dosage: 290 UNITS, SINGLE
     Route: 030
     Dates: start: 20090918, end: 20090918
  2. BOTOX [Suspect]
     Dosage: 290 UNITS, SINGLE
     Route: 030
     Dates: start: 20090918, end: 20090918
  3. BOTOX [Suspect]
     Dosage: UNK
     Route: 030
  4. UNKNOWN [Concomitant]
     Indication: HYPERTENSION

REACTIONS (3)
  - BONE PAIN [None]
  - MUSCULOSKELETAL STIFFNESS [None]
  - THERAPEUTIC RESPONSE DECREASED [None]
